FAERS Safety Report 8113220-X (Version None)
Quarter: 2012Q1

REPORT INFORMATION
  Report Type: 
  Country: None (occurrence: None)
  Receive Date: 20120203
  Receipt Date: 20120131
  Transmission Date: 20120608
  Serious: Yes (Other)
  Sender: FDA-Public Use
  Company Number: US-PFIZER INC-2012002677

PATIENT
  Age: 66 Year
  Sex: Male

DRUGS (3)
  1. PHENYTOIN [Suspect]
     Indication: GRAND MAL CONVULSION
     Dosage: 200MG (2 X 100MG) IN MORNING + 100MG AT NOON + 200MG (2 X 100MG) AT NIGHT
  2. PHENYTOIN [Suspect]
     Dosage: 200MG (2 X 100MG) IN MORNING + 200MG (2 X 100MG) AT NOON + 200MG (2 X 100MG) AT NIGHT
  3. DILANTIN-125 [Suspect]
     Indication: GRAND MAL CONVULSION
     Dosage: 200MG (2 X 100MG) IN MORNING+100MG AT NOON + 200MG (2 X 100MG) AT NIGHT

REACTIONS (2)
  - CONVULSION [None]
  - GRAND MAL CONVULSION [None]
